FAERS Safety Report 5390817-1 (Version None)
Quarter: 2007Q3

REPORT INFORMATION
  Report Type: 
  Country: None (occurrence: None)
  Receive Date: 20070716
  Receipt Date: 20070628
  Transmission Date: 20080115
  Serious: Yes (Hospitalization)
  Sender: FDA-Public Use
  Company Number: DSA_30210_2007

PATIENT
  Age: 70 Year
  Sex: Male
  Weight: 70 kg

DRUGS (13)
  1. RENIVACE (RENIVACE) [Suspect]
     Dosage: 5 MG QD ORAL
     Route: 048
     Dates: start: 20070506, end: 20070613
  2. TAKEPRON (TAKEPRON) (NOT SPECIFIED) [Suspect]
     Dosage: 30 MG QD ORAL
     Route: 048
     Dates: start: 20070511, end: 20070613
  3. ARTIST (ARTIST) [Suspect]
     Dosage: 25 MG QD ORAL
     Route: 048
     Dates: start: 20070515, end: 20070613
  4. LASIX [Concomitant]
  5. GRAMALIL [Concomitant]
  6. ASPIRIN [Concomitant]
  7. TICLOPIDINE HCL [Concomitant]
  8. DEPAS [Concomitant]
  9. AMLODIPINE [Concomitant]
  10. MAGMITT [Concomitant]
  11. ISOSORBIDE DINITRATE [Concomitant]
  12. ALDACTONE [Concomitant]
  13. LEVOFLOXACIN [Concomitant]

REACTIONS (1)
  - INTERSTITIAL LUNG DISEASE [None]
